FAERS Safety Report 23446420 (Version 2)
Quarter: 2024Q1

REPORT INFORMATION
  Report Type: Spontaneous
  Country: AU (occurrence: AU)
  Receive Date: 20240126
  Receipt Date: 20240202
  Transmission Date: 20240410
  Serious: Yes (Life-Threatening, Hospitalization, Other)
  Sender: FDA-Public Use
  Company Number: AU-002147023-NVSC2024AU008829

PATIENT
  Age: 8 Year
  Sex: Male

DRUGS (3)
  1. TISAGENLECLEUCEL [Suspect]
     Active Substance: TISAGENLECLEUCEL
     Indication: B-cell type acute leukaemia
     Dosage: 1 DOSAGE FORM, ONCE/SINGLE
     Route: 042
  2. DEXAMETHASONE [Suspect]
     Active Substance: DEXAMETHASONE
     Indication: Product used for unknown indication
     Dosage: UNK
     Route: 065
  3. LEUCOVORIN [Suspect]
     Active Substance: LEUCOVORIN\LEUCOVORIN CALCIUM
     Indication: Product used for unknown indication
     Dosage: UNK
     Route: 065

REACTIONS (9)
  - Venous occlusion [Unknown]
  - Abdominal sepsis [Unknown]
  - Disseminated mucormycosis [Unknown]
  - Myelosuppression [Unknown]
  - Neutropenia [Unknown]
  - Enterococcal infection [Unknown]
  - Mycobacterial infection [Unknown]
  - Leukaemia recurrent [Unknown]
  - Gastrointestinal inflammation [Unknown]
